FAERS Safety Report 11804644 (Version 1)
Quarter: 2015Q4

REPORT INFORMATION
  Report Type: Report from Study
  Country: US (occurrence: US)
  Receive Date: 20151204
  Receipt Date: 20151204
  Transmission Date: 20160305
  Serious: Yes (Other)
  Sender: FDA-Public Use
  Company Number: US-BRISTOL-MYERS SQUIBB COMPANY-BMS-2015-081740

PATIENT
  Age: 50 Year
  Sex: Male
  Weight: 110.7 kg

DRUGS (1)
  1. IPILIMUMAB [Suspect]
     Active Substance: IPILIMUMAB
     Indication: MALIGNANT MELANOMA
     Dosage: 3 MG/KG, Q3WK
     Route: 042
     Dates: start: 20140623

REACTIONS (2)
  - Pituitary enlargement [Unknown]
  - VIIth nerve paralysis [Recovering/Resolving]

NARRATIVE: CASE EVENT DATE: 20140910
